FAERS Safety Report 20886343 (Version 3)
Quarter: 2022Q2

REPORT INFORMATION
  Report Type: Report from Study
  Country: CL (occurrence: None)
  Receive Date: 20220527
  Receipt Date: 20220622
  Transmission Date: 20220721
  Serious: Yes (Hospitalization, Other)
  Sender: FDA-Public Use
  Company Number: CL-Eisai Medical Research-EC-2022-115630

PATIENT
  Age: 70 Year
  Sex: Male
  Weight: 100.5 kg

DRUGS (20)
  1. LENVATINIB [Suspect]
     Active Substance: LENVATINIB
     Indication: Clear cell renal cell carcinoma
     Dosage: STARTING DOSE 20 MG, FLUCTUATED DOSAGE.
     Route: 048
     Dates: start: 20211116, end: 20220227
  2. LENVATINIB [Suspect]
     Active Substance: LENVATINIB
     Indication: Renal cell carcinoma
     Route: 048
     Dates: start: 20220228, end: 20220315
  3. QUAVONLIMAB [Suspect]
     Active Substance: QUAVONLIMAB
     Indication: Clear cell renal cell carcinoma
     Dosage: (QUAVONLIMAB (MK-1308) 25 MG + PEMBROLIZUMAB (MK-3475) 400 MG)
     Route: 042
     Dates: start: 20211116, end: 20211229
  4. PEMBROLIZUMAB [Suspect]
     Active Substance: PEMBROLIZUMAB
     Indication: Renal cell carcinoma
     Dosage: (QUAVONLIMAB (MK-1308) 25 MG + PEMBROLIZUMAB (MK-3475) 400 MG)
     Route: 042
     Dates: start: 20220228, end: 20220228
  5. ATORVASTATIN [Concomitant]
     Active Substance: ATORVASTATIN
     Dates: start: 201801
  6. TRAMADOL HYDROCHLORIDE [Concomitant]
     Active Substance: TRAMADOL HYDROCHLORIDE
     Dates: start: 202105
  7. AMLODIPINE [Concomitant]
     Active Substance: AMLODIPINE BESYLATE
     Dates: start: 20211206
  8. HYDROCHLOROTHIAZIDE [Concomitant]
     Active Substance: HYDROCHLOROTHIAZIDE
     Dates: start: 20211215
  9. ENALAPRIL [Concomitant]
     Active Substance: ENALAPRIL
     Dates: start: 20211215
  10. UREA [Concomitant]
     Active Substance: UREA
     Dates: start: 20211220
  11. LOPERAMIDE [Concomitant]
     Active Substance: LOPERAMIDE
     Dates: start: 20220208
  12. HYDROCORTISONE [Concomitant]
     Active Substance: HYDROCORTISONE
     Dates: start: 20220316
  13. CLOTRIMAZOLE [Concomitant]
     Active Substance: CLOTRIMAZOLE
     Dates: start: 20220316
  14. DESLORATADINE [Concomitant]
     Active Substance: DESLORATADINE
     Dates: start: 20220316
  15. ONDANSETRON [Concomitant]
     Active Substance: ONDANSETRON
     Dates: start: 20220316
  16. DOMPERIDONE [Concomitant]
     Active Substance: DOMPERIDONE
     Dates: start: 20220329
  17. CEFADROXIL [Concomitant]
     Active Substance: CEFADROXIL
     Dates: start: 20220329
  18. PREDNISONE [Concomitant]
     Active Substance: PREDNISONE
     Dates: start: 20220510, end: 20220520
  19. CIPROFLOXACIN [Concomitant]
     Active Substance: CIPROFLOXACIN
     Dates: start: 20220512, end: 20220519
  20. ACETAMINOPHEN [Concomitant]
     Active Substance: ACETAMINOPHEN
     Dates: start: 202105

REACTIONS (1)
  - Blood creatinine increased [Not Recovered/Not Resolved]

NARRATIVE: CASE EVENT DATE: 20220520
